FAERS Safety Report 10901213 (Version 1)
Quarter: 2015Q1

REPORT INFORMATION
  Report Type: Spontaneous
  Country: US (occurrence: US)
  Receive Date: 20150310
  Receipt Date: 20150310
  Transmission Date: 20150721
  Serious: Yes (Other)
  Sender: FDA-Public Use
  Company Number: US-RANBAXY-2013US-65546

PATIENT
  Age: 47 Year
  Sex: Female

DRUGS (4)
  1. ABACAVIR/LAMIVUDINE [Interacting]
     Active Substance: ABACAVIR\LAMIVUDINE
     Indication: ANTIRETROVIRAL THERAPY
     Dosage: UNK
     Route: 065
  2. TRIAMCINOLONE [Suspect]
     Active Substance: TRIAMCINOLONE
     Indication: PAIN
     Dosage: UNK
     Route: 008
  3. RITONAVIR/DARUNAVIR [Interacting]
     Active Substance: DARUNAVIR\RITONAVIR
     Indication: ANTIRETROVIRAL THERAPY
     Dosage: UNK
     Route: 065
  4. FLUTICASONE/SALMETEROL [Interacting]
     Active Substance: FLUTICASONE PROPIONATE\SALMETEROL XINAFOATE
     Indication: ASTHMA
     Dosage: UNK
     Route: 055

REACTIONS (6)
  - Drug interaction [Recovered/Resolved]
  - Oral candidiasis [None]
  - Blood pressure increased [None]
  - Iatrogenic injury [None]
  - Asthma [None]
  - Hypercorticoidism [Recovered/Resolved]
